FAERS Safety Report 8588133 (Version 6)
Quarter: 2014Q2

REPORT INFORMATION
  Report Type: Spontaneous
  Country: US (occurrence: US)
  Receive Date: 20120531
  Receipt Date: 20140305
  Transmission Date: 20141212
  Serious: Yes (Other)
  Sender: FDA-Public Use
  Company Number: US-ROCHE-1070777

PATIENT
  Age: 51 Year
  Sex: Male

DRUGS (4)
  1. AVASTIN [Suspect]
     Indication: DIABETIC RETINAL OEDEMA
     Dosage: RECEIVED IN RIGHT EYE
     Route: 050
     Dates: start: 2010
  2. AVASTIN [Suspect]
     Indication: AGE-RELATED MACULAR DEGENERATION
     Dosage: RECEIVED IN RIGHT EYE
     Route: 050
     Dates: start: 20120518
  3. PREDNISONE [Concomitant]
  4. INFLIXIMAB [Concomitant]

REACTIONS (13)
  - Endophthalmitis [Unknown]
  - Blindness unilateral [Unknown]
  - Suspected transmission of an infectious agent via product [Unknown]
  - Eye infection [Unknown]
  - Blindness unilateral [Not Recovered/Not Resolved]
  - Ophthalmological examination abnormal [Unknown]
  - Eyelid oedema [Unknown]
  - Ocular hyperaemia [Unknown]
  - Vitreous floaters [Unknown]
  - Eye pain [Unknown]
  - Eye swelling [Unknown]
  - Erythema [Unknown]
  - Product quality issue [Unknown]
